FAERS Safety Report 4509002-8 (Version None)
Quarter: 2004Q4

REPORT INFORMATION
  Report Type: 
  Country: None (occurrence: None)
  Receive Date: 20041122
  Receipt Date: 20041122
  Transmission Date: 20050328
  Serious: Yes (Hospitalization)
  Sender: FDA-Public Use
  Company Number: None

PATIENT
  Age: 94 Year
  Sex: Female

DRUGS (8)
  1. DILTIAZEM [Suspect]
     Indication: HYPERTENSION
     Dosage: 240 MG DAILY ORAL
     Route: 048
  2. BENAZEPRIL HCL [Concomitant]
  3. ROFECOXIB [Concomitant]
  4. FAMOTIDINE [Concomitant]
  5. OXYBUTYNIN [Concomitant]
  6. CIPROFLOXACIN [Concomitant]
  7. SENNA [Concomitant]
  8. LACTULOSE [Concomitant]

REACTIONS (1)
  - BRADYCARDIA [None]
